FAERS Safety Report 9014684 (Version 1)
Quarter: 2013Q1

REPORT INFORMATION
  Report Type: Spontaneous
  Country: US (occurrence: US)
  Receive Date: 20130115
  Receipt Date: 20130115
  Transmission Date: 20140127
  Serious: Yes (Hospitalization)
  Sender: FDA-Public Use
  Company Number: US-009507513-1301USA003380

PATIENT
  Age: 52 Year
  Sex: Female

DRUGS (18)
  1. SINGULAIR [Suspect]
  2. QUALAQUIN [Suspect]
     Dosage: 520 MG, HS
     Route: 048
  3. QUININE SULFATE [Suspect]
     Dosage: 520 MG, HS
     Route: 048
  4. QUININE SULFATE [Suspect]
     Dosage: 520 UNK, UNK
     Route: 048
  5. ALLEGRA [Suspect]
  6. ALBUTEROL [Suspect]
     Indication: MUSCLE SPASMS
  7. PRILOSEC [Suspect]
  8. MOBIC [Suspect]
  9. ADVAIR [Suspect]
  10. PERCOCET [Suspect]
  11. BENEFIBER [Suspect]
  12. KEFLEX [Suspect]
  13. COLACE [Suspect]
  14. TAMBOCOR [Suspect]
  15. PROTONIX [Suspect]
  16. VITAMINS (UNSPECIFIED) [Suspect]
  17. CYANOCOBALAMIN [Suspect]
  18. FOLIC ACID [Suspect]

REACTIONS (13)
  - Thrombocytopenia [Unknown]
  - Pain in extremity [Unknown]
  - Microcytic anaemia [Unknown]
  - Iron deficiency anaemia [Unknown]
  - Infection [Unknown]
  - Hiatus hernia [Unknown]
  - Haemorrhoidal haemorrhage [Unknown]
  - Gastritis [Unknown]
  - Diverticulum intestinal [Unknown]
  - Decreased appetite [Unknown]
  - Back pain [Unknown]
  - Asthma [Unknown]
  - Abdominal tenderness [Unknown]
